FAERS Safety Report 10170177 (Version 1)
Quarter: 2014Q2

REPORT INFORMATION
  Report Type: Spontaneous
  Country: US (occurrence: US)
  Receive Date: 20140513
  Receipt Date: 20140513
  Transmission Date: 20141212
  Serious: Yes (Hospitalization, Other)
  Sender: FDA-Public Use
  Company Number: US-MYLANLABS-2014S1010465

PATIENT
  Age: 25 Year
  Sex: Male
  Weight: 124.74 kg

DRUGS (11)
  1. METOPROLOL [Suspect]
     Indication: HEART RATE INCREASED
     Dates: start: 2014, end: 2014
  2. KALBITOR [Suspect]
     Indication: HEREDITARY ANGIOEDEMA
     Route: 058
     Dates: start: 2010
  3. XARELTO [Suspect]
     Indication: PULMONARY EMBOLISM
     Route: 048
     Dates: start: 20140310
  4. REMICADE [Concomitant]
     Indication: ARTHRITIS
  5. SULFASALAZINE [Concomitant]
     Route: 048
     Dates: start: 201311
  6. VITAMIN D [Concomitant]
     Route: 048
  7. VENLAFAXINE [Concomitant]
     Indication: ANXIETY
     Route: 048
  8. METFORMIN [Concomitant]
     Indication: DIABETES MELLITUS
     Route: 048
     Dates: start: 2013
  9. HYDROCODONE [Concomitant]
     Indication: PAIN
     Route: 048
  10. CLONAZEPAM [Concomitant]
     Indication: PANIC ATTACK
     Route: 048
     Dates: start: 2004
  11. CINRYZE [Concomitant]
     Indication: HEREDITARY ANGIOEDEMA
     Dates: start: 2010

REACTIONS (2)
  - Hereditary angioedema [Recovered/Resolved]
  - Condition aggravated [Recovered/Resolved]
